FAERS Safety Report 5980078-4 (Version None)
Quarter: 2008Q4

REPORT INFORMATION
  Report Type: 
  Country: None (occurrence: None)
  Receive Date: 20081128
  Receipt Date: 20081113
  Transmission Date: 20090506
  Serious: Yes (Hospitalization, Disabling)
  Sender: FDA-Public Use
  Company Number: GXKR2008CA10932

PATIENT
  Age: 39 Year
  Sex: Male

DRUGS (6)
  1. METHYLPREDNISOLONE [Suspect]
     Indication: IMMUNOSUPPRESSION
     Dosage: 100 MG
  2. MYCOPHENOLATE MOFETIL [Suspect]
     Indication: IMMUNOSUPPRESSION
     Dosage: 1500 MG, BIO
  3. MILRINONE (MILRINONE) [Concomitant]
  4. EPINEPHRINE [Concomitant]
  5. ISOPRIL [Concomitant]
  6. TACROLIMUS [Suspect]
     Indication: IMMUNOSUPPRESSION

REACTIONS (17)
  - BLISTER [None]
  - BLOOD CULTURE POSITIVE [None]
  - CULTURE URINE POSITIVE [None]
  - CULTURE WOUND POSITIVE [None]
  - DIALYSIS [None]
  - GENERAL PHYSICAL HEALTH DETERIORATION [None]
  - KLEBSIELLA INFECTION [None]
  - NECROTISING FASCIITIS [None]
  - OEDEMA [None]
  - PAIN IN EXTREMITY [None]
  - PANCYTOPENIA [None]
  - RENAL FAILURE ACUTE [None]
  - SCAR [None]
  - SEPSIS [None]
  - SKIN GRAFT [None]
  - SKIN HAEMORRHAGE [None]
  - TOE AMPUTATION [None]
